FAERS Safety Report 18426557 (Version 1)
Quarter: 2020Q4

REPORT INFORMATION
  Report Type: Spontaneous
  Country: US (occurrence: US)
  Receive Date: 20201026
  Receipt Date: 20201026
  Transmission Date: 20210114
  Serious: Yes (Other)
  Sender: FDA-Public Use
  Company Number: None

PATIENT
  Age: 31 Year
  Sex: Female
  Weight: 108 kg

DRUGS (3)
  1. DEPAKOTE [Suspect]
     Active Substance: DIVALPROEX SODIUM
     Indication: BIPOLAR I DISORDER
     Dosage: ?          QUANTITY:1 TABLET(S);?
     Route: 048
     Dates: start: 20201012, end: 20201025
  2. SEROQUEL [Concomitant]
     Active Substance: QUETIAPINE FUMARATE
  3. MEDICAL MARIJUANA OIL VAPOR [Concomitant]

REACTIONS (8)
  - Skin discolouration [None]
  - Blood pressure increased [None]
  - Anxiety [None]
  - Epistaxis [None]
  - Therapy interrupted [None]
  - Dyspnoea [None]
  - Tachycardia [None]
  - Panic reaction [None]

NARRATIVE: CASE EVENT DATE: 20201012
